FAERS Safety Report 18158243 (Version 1)
Quarter: 2020Q3

REPORT INFORMATION
  Report Type: Spontaneous
  Country: FR (occurrence: FR)
  Receive Date: 20200817
  Receipt Date: 20200817
  Transmission Date: 20201103
  Serious: Yes (Hospitalization)
  Sender: FDA-Public Use
  Company Number: FR-ALLERGAN-2030744US

PATIENT
  Sex: Male
  Weight: 114 kg

DRUGS (1)
  1. MESALAZINE UNK [Suspect]
     Active Substance: MESALAMINE
     Indication: INFLAMMATORY BOWEL DISEASE
     Dosage: 4800 MG, QD
     Route: 048
     Dates: start: 20200722, end: 20200728

REACTIONS (4)
  - Chest pain [Recovering/Resolving]
  - Myocarditis [Recovering/Resolving]
  - Troponin increased [Recovering/Resolving]
  - Pericarditis [Recovering/Resolving]

NARRATIVE: CASE EVENT DATE: 20200728
